FAERS Safety Report 16288517 (Version 1)
Quarter: 2019Q2

REPORT INFORMATION
  Report Type: Spontaneous
  Country: US (occurrence: US)
  Receive Date: 20190509
  Receipt Date: 20190509
  Transmission Date: 20190711
  Serious: Yes (Other)
  Sender: FDA-Public Use
  Company Number: US-ZYDUS-036591

PATIENT
  Age: 68 Year
  Sex: Male

DRUGS (3)
  1. AZATHIOPRINE. [Suspect]
     Active Substance: AZATHIOPRINE
     Indication: MYASTHENIA GRAVIS
     Route: 065
  2. PREDNISONE. [Concomitant]
     Active Substance: PREDNISONE
     Indication: PRODUCT USED FOR UNKNOWN INDICATION
     Route: 048
  3. PYRIDOSTIGMINE/PYRIDOSTIGMINE BROMIDE [Concomitant]
     Indication: PRODUCT USED FOR UNKNOWN INDICATION
     Route: 065

REACTIONS (12)
  - Fatigue [Recovering/Resolving]
  - Rash erythematous [Recovering/Resolving]
  - Vomiting [Recovering/Resolving]
  - Drug hypersensitivity [Recovering/Resolving]
  - Headache [Recovering/Resolving]
  - Tachycardia [Recovering/Resolving]
  - Rash pustular [Recovering/Resolving]
  - Pruritus [Recovering/Resolving]
  - Chills [Recovering/Resolving]
  - Pyrexia [Recovering/Resolving]
  - Nausea [Recovering/Resolving]
  - Rash [Recovering/Resolving]
